FAERS Safety Report 17762524 (Version 1)
Quarter: 2020Q2

REPORT INFORMATION
  Report Type: Report from Study
  Country: IT (occurrence: IT)
  Receive Date: 20200508
  Receipt Date: 20200508
  Transmission Date: 20200714
  Serious: Yes (Other)
  Sender: FDA-Public Use
  Company Number: IT-GLAXOSMITHKLINE-IT2020GSK075930

PATIENT
  Sex: Female

DRUGS (2)
  1. VALACICLOVIR HYDROCHLORIDE [Suspect]
     Active Substance: VALACYCLOVIR HYDROCHLORIDE
     Indication: CYTOMEGALOVIRUS INFECTION
     Dosage: 8 G/ DAY
  2. VALACICLOVIR HYDROCHLORIDE [Suspect]
     Active Substance: VALACYCLOVIR HYDROCHLORIDE
     Indication: VERTICAL INFECTION TRANSMISSION

REACTIONS (5)
  - Live birth [Unknown]
  - Exposure during pregnancy [Unknown]
  - Off label use [Unknown]
  - Cytomegalovirus infection reactivation [Unknown]
  - Cytomegalovirus viraemia [Unknown]
